FAERS Safety Report 6922082-5 (Version None)
Quarter: 2010Q3

REPORT INFORMATION
  Report Type: 
  Country: None (occurrence: None)
  Receive Date: 20100812
  Receipt Date: 20100802
  Transmission Date: 20110219
  Serious: Yes (Hospitalization)
  Sender: FDA-Public Use
  Company Number: FR-ABBOTT-10P-056-0647483-00

PATIENT
  Sex: Female
  Weight: 79 kg

DRUGS (5)
  1. HUMIRA [Suspect]
     Indication: SPONDYLITIS
     Route: 058
     Dates: start: 20100113, end: 20100520
  2. DAFLON [Concomitant]
     Indication: VENOUS INSUFFICIENCY
     Dates: start: 20010101
  3. LEVOTHYROXINE SODIUM [Concomitant]
     Indication: HYPOTHYROIDISM
     Dates: start: 20010101
  4. RIFAMATE [Concomitant]
     Indication: ANTIBIOTIC PROPHYLAXIS
     Dates: start: 20091207, end: 20100307
  5. TRANSIPEG [Concomitant]
     Indication: CONSTIPATION
     Dates: start: 20020101, end: 20090101

REACTIONS (1)
  - STOMATITIS [None]
